FAERS Safety Report 15657519 (Version 1)
Quarter: 2018Q4

REPORT INFORMATION
  Report Type: Spontaneous
  Country: US (occurrence: US)
  Receive Date: 20181126
  Receipt Date: 20181126
  Transmission Date: 20190205
  Serious: No
  Sender: FDA-Public Use
  Company Number: US-TAKEDA-2018TUS033392

PATIENT
  Sex: Female

DRUGS (1)
  1. DEXILANT [Suspect]
     Active Substance: DEXLANSOPRAZOLE
     Indication: EROSIVE OESOPHAGITIS
     Dosage: UNK
     Route: 065
     Dates: end: 20181112

REACTIONS (3)
  - Oral fungal infection [Unknown]
  - Oral mucosal blistering [Unknown]
  - Skin irritation [Unknown]
